FAERS Safety Report 4308109-8 (Version None)
Quarter: 2004Q1

REPORT INFORMATION
  Report Type: 
  Country: None (occurrence: None)
  Receive Date: 20040301
  Receipt Date: 20030516
  Transmission Date: 20041129
  Serious: No
  Sender: FDA-Public Use
  Company Number: US-BRISTOL-MYERS SQUIBB COMPANY-12279436

PATIENT
  Age: 65 Year
  Sex: Female
  Weight: 73 kg

DRUGS (11)
  1. GLUCOPHAGE [Suspect]
     Indication: DIABETES MELLITUS
     Dosage: START OF THERAPY:  ^6 OR 7 YEARS AGO^
     Route: 048
  2. AVANDIA [Concomitant]
  3. GLIPIZIDE [Concomitant]
  4. TOPROL-XL [Concomitant]
     Indication: CARDIAC DISORDER
  5. ZESTRIL [Concomitant]
     Indication: CARDIAC DISORDER
  6. MULTIVITAMIN [Concomitant]
  7. CALCIUM + VITAMIN D [Concomitant]
  8. VITAMIN B6 [Concomitant]
  9. VITAMIN E [Concomitant]
  10. ASPIRIN [Concomitant]
  11. LYCOPENE [Concomitant]

REACTIONS (4)
  - BLOOD CHOLESTEROL INCREASED [None]
  - BLOOD GLUCOSE INCREASED [None]
  - DIARRHOEA [None]
  - MUSCLE CRAMP [None]
